FAERS Safety Report 9160489 (Version 3)
Quarter: 2013Q1

REPORT INFORMATION
  Report Type: Spontaneous
  Country: US (occurrence: None)
  Receive Date: 20130219
  Receipt Date: 20130226
  Transmission Date: 20140127
  Serious: Yes (Other)
  Sender: FDA-Public Use
  Company Number: 2013P1002016

PATIENT
  Age: 57 Year
  Sex: Female
  Weight: 68.04 kg

DRUGS (15)
  1. REGLAN INJECTION 10MG/2ML VIAL [Suspect]
     Indication: NAUSEA
     Route: 042
  2. TIGAN [Concomitant]
  3. DEMEROL [Concomitant]
  4. VISTARIL [Concomitant]
  5. CODEINE [Concomitant]
  6. DURAGESIC-25 [Concomitant]
  7. WYGESIC [Concomitant]
  8. ZOFRAN [Concomitant]
  9. PSEUDOEPHEDRINE HCL [Concomitant]
  10. SULFA [Concomitant]
  11. COMPAZINE [Concomitant]
  12. IRON [Concomitant]
  13. TETRACYCLINE [Concomitant]
  14. HYDROCODONE-ACETAMINOPHEN [Concomitant]
  15. PHENERGAN [Suspect]

REACTIONS (3)
  - Anaphylactic reaction [None]
  - Clonus [None]
  - Drug hypersensitivity [None]
